FAERS Safety Report 14199920 (Version 1)
Quarter: 2017Q4

REPORT INFORMATION
  Report Type: Spontaneous
  Country: US (occurrence: US)
  Receive Date: 20171117
  Receipt Date: 20171117
  Transmission Date: 20180321
  Serious: No
  Sender: FDA-Public Use
  Company Number: US-BAUSCH-BL-2017-027230

PATIENT
  Age: 64 Year
  Sex: Female
  Weight: 69.92 kg

DRUGS (2)
  1. XIFAXAN [Suspect]
     Active Substance: RIFAXIMIN
     Indication: GASTROINTESTINAL BACTERIAL OVERGROWTH
     Dosage: FIRST COURSE
     Route: 065
     Dates: start: 201506
  2. XIFAXAN [Suspect]
     Active Substance: RIFAXIMIN
     Dosage: SECOND COURSE (CURRENTLY)
     Route: 065
     Dates: start: 2017

REACTIONS (4)
  - No adverse event [Unknown]
  - Off label use [Not Recovered/Not Resolved]
  - Expired product administered [Unknown]
  - Treatment noncompliance [Unknown]

NARRATIVE: CASE EVENT DATE: 201506
